FAERS Safety Report 4330617-4 (Version None)
Quarter: 2004Q2

REPORT INFORMATION
  Report Type: 
  Country: None (occurrence: None)
  Receive Date: 20040402
  Receipt Date: 20040323
  Transmission Date: 20050107
  Serious: Yes (Other)
  Sender: FDA-Public Use
  Company Number: FR-ROCHE-362590

PATIENT
  Age: 58 Year
  Sex: Male

DRUGS (3)
  1. PEGASYS [Suspect]
     Indication: HEPATITIS C
     Route: 065
  2. COPEGUS [Concomitant]
     Indication: HEPATITIS C
     Route: 065
  3. AMLOR [Concomitant]
     Indication: HYPERTENSION
     Route: 065

REACTIONS (2)
  - CONJUNCTIVITIS [None]
  - MACULAR DEGENERATION [None]
